FAERS Safety Report 5721622-1 (Version None)
Quarter: 2008Q2

REPORT INFORMATION
  Report Type: 
  Country: None (occurrence: None)
  Receive Date: 20080429
  Receipt Date: 20080407
  Transmission Date: 20081010
  Serious: No
  Sender: FDA-Public Use
  Company Number: US-ASTRAZENECA-2005UW07248

PATIENT
  Age: 79 Year
  Sex: Female
  Weight: 81.2 kg

DRUGS (17)
  1. NEXIUM [Suspect]
     Indication: GASTROOESOPHAGEAL REFLUX DISEASE
     Route: 048
     Dates: start: 20030101
  2. NEXIUM [Suspect]
     Route: 048
     Dates: start: 20030101
  3. CARTIA XT [Concomitant]
  4. DAYHIST [Concomitant]
  5. XANAX [Concomitant]
  6. ALBUTEROL [Concomitant]
  7. FLOVENT [Concomitant]
  8. VITAMINS [Concomitant]
  9. CALCIUM [Concomitant]
  10. COMPAZINE [Concomitant]
  11. LIPITOR [Concomitant]
  12. ANTIHISTAMINES [Concomitant]
  13. ALLERGY SHOTS [Concomitant]
  14. CARDIA [Concomitant]
  15. ALPRAZOLAM [Concomitant]
  16. ZOLOFT [Concomitant]
  17. CLARINEX [Concomitant]

REACTIONS (5)
  - FLATULENCE [None]
  - GASTROOESOPHAGEAL REFLUX DISEASE [None]
  - HEADACHE [None]
  - INCREASED UPPER AIRWAY SECRETION [None]
  - STOMACH DISCOMFORT [None]
